FAERS Safety Report 8833892 (Version 2)
Quarter: 2012Q4

REPORT INFORMATION
  Report Type: 
  Country: US (occurrence: US)
  Receive Date: 20121010
  Receipt Date: 20121030
  Transmission Date: 20130627
  Serious: Yes (Death)
  Sender: FDA-Public Use
  Company Number: US-009507513-1210USA002777

PATIENT
  Age: 47 Year
  Sex: Female

DRUGS (2)
  1. TEMODAR [Suspect]
     Indication: METASTATIC MALIGNANT MELANOMA
  2. THALIDOMIDE [Concomitant]
     Indication: METASTATIC MALIGNANT MELANOMA

REACTIONS (1)
  - Drug ineffective [Fatal]
